FAERS Safety Report 4431379-2 (Version None)
Quarter: 2004Q3

REPORT INFORMATION
  Report Type: 
  Country: None (occurrence: None)
  Receive Date: 20040824
  Receipt Date: 20040729
  Transmission Date: 20050211
  Serious: Yes (Other)
  Sender: FDA-Public Use
  Company Number: US-ROCHE-376361

PATIENT
  Age: 42 Year
  Sex: Female

DRUGS (4)
  1. CELLCEPT [Suspect]
     Indication: LUPUS NEPHRITIS
     Route: 048
     Dates: start: 20040724, end: 20040724
  2. ENALAPRIL MALEATE [Concomitant]
     Dosage: STARTED MANY YEARS AGO.
     Dates: end: 20040724
  3. HYDROCHLOROTHIAZIDE [Concomitant]
  4. PLAQUENIL [Concomitant]

REACTIONS (1)
  - ANGIONEUROTIC OEDEMA [None]
